FAERS Safety Report 18363919 (Version 1)
Quarter: 2020Q4

REPORT INFORMATION
  Report Type: Spontaneous
  Country: CA (occurrence: CA)
  Receive Date: 20201009
  Receipt Date: 20201009
  Transmission Date: 20210114
  Serious: Yes (Other)
  Sender: FDA-Public Use
  Company Number: CA-JNJFOC-20201000777

PATIENT
  Age: 51 Year
  Sex: Male

DRUGS (10)
  1. DICLOFENAC [Concomitant]
     Active Substance: DICLOFENAC
  2. INFLIXIMAB, RECOMBINANT [Suspect]
     Active Substance: INFLIXIMAB
     Indication: PSORIATIC ARTHROPATHY
     Route: 042
  3. METHOTREXATE. [Concomitant]
     Active Substance: METHOTREXATE
     Route: 048
  4. METFORMIN [Concomitant]
     Active Substance: METFORMIN HYDROCHLORIDE
  5. PLAQUENIL                          /00072602/ [Concomitant]
     Active Substance: HYDROXYCHLOROQUINE DIPHOSPHATE
     Route: 065
  6. SLOW K [Concomitant]
     Active Substance: POTASSIUM CHLORIDE
     Route: 048
  7. SYNTHROID [Concomitant]
     Active Substance: LEVOTHYROXINE SODIUM
     Route: 065
  8. SYNTHROID [Concomitant]
     Active Substance: LEVOTHYROXINE SODIUM
  9. ROSUVASTATIN CALCIUM. [Concomitant]
     Active Substance: ROSUVASTATIN CALCIUM
     Route: 065
  10. COVERSYL                           /00790702/ [Concomitant]
     Active Substance: PERINDOPRIL
     Route: 065

REACTIONS (5)
  - Off label use [Unknown]
  - Urethral stenosis [Unknown]
  - Fungal infection [Unknown]
  - Inappropriate schedule of product administration [Unknown]
  - Cystitis [Unknown]
